FAERS Safety Report 12608303 (Version 1)
Quarter: 2016Q3

REPORT INFORMATION
  Report Type: Report from Study
  Country: FR (occurrence: FR)
  Receive Date: 20160729
  Receipt Date: 20160729
  Transmission Date: 20161109
  Serious: Yes (Other)
  Sender: FDA-Public Use
  Company Number: FR-CELGENEUS-056-21880-14040400

PATIENT

DRUGS (1)
  1. REVLIMID [Suspect]
     Active Substance: LENALIDOMIDE
     Indication: KAPOSI^S SARCOMA
     Route: 048

REACTIONS (12)
  - Thrombocytopenia [Unknown]
  - Pyrexia [Unknown]
  - Hypokalaemia [Unknown]
  - Cachexia [Unknown]
  - Asthenia [Unknown]
  - Oedema genital [Unknown]
  - Anogenital warts [Unknown]
  - Diarrhoea [Unknown]
  - Vomiting [Unknown]
  - Areflexia [Unknown]
  - Visual acuity reduced [Unknown]
  - Neutropenia [Unknown]
